FAERS Safety Report 6748648-3 (Version None)
Quarter: 2010Q2

REPORT INFORMATION
  Report Type: 
  Country: None (occurrence: None)
  Receive Date: 20100601
  Receipt Date: 20100517
  Transmission Date: 20101027
  Serious: Yes (Hospitalization)
  Sender: FDA-Public Use
  Company Number: FR-SOLVAY-00210003376

PATIENT
  Age: 32014 Day
  Sex: Female

DRUGS (11)
  1. DOLIPRANE [Concomitant]
     Indication: DRUG USE FOR UNKNOWN INDICATION
     Dosage: DAILY DOSE:  UNKNOWN
     Route: 065
  2. FOSAMAX [Concomitant]
     Indication: DRUG USE FOR UNKNOWN INDICATION
     Dosage: DAILY DOSE:  UNKNOWN
     Route: 065
  3. ARICEPT [Suspect]
     Indication: DEMENTIA ALZHEIMER'S TYPE
     Dosage: DAILY DOSE: 10 MILLIGRAM(S)
     Route: 048
  4. ALDACTONE [Suspect]
     Indication: HYPERTENSION
     Dosage: DAILY DOSE: 50 MILLIGRAM(S)
     Route: 048
     Dates: end: 20090519
  5. NEXIUM [Suspect]
     Indication: DRUG USE FOR UNKNOWN INDICATION
     Dosage: DAILY DOSE: 20 MILLIGRAM(S)
     Route: 048
  6. DEROXAT [Suspect]
     Indication: DEPRESSION
     Dosage: DAILY DOSE: 20 MILLIGRAM(S)
     Route: 048
     Dates: end: 20090519
  7. DURAGESIC-100 [Suspect]
     Indication: BACK PAIN
     Dosage: DAILY DOSE: .333 DOSAGE FORM
     Route: 062
     Dates: start: 20090501
  8. ACTISKENAN [Suspect]
     Indication: BACK PAIN
     Dosage: DAILY DOSE: 10 MILLIGRAM(S)
     Route: 048
     Dates: start: 20090401, end: 20090519
  9. DIAMICRON 30 MG MODIFIED-RELEASE TABLET [Suspect]
     Indication: TYPE 2 DIABETES MELLITUS
     Dosage: DAILY DOSE: 30 MILLIGRAM(S)
     Route: 065
  10. COVERSYL 4 MG TABLET [Suspect]
     Indication: HYPERTENSION
     Dosage: DAILY DOSE: 4 MILLIGRAM(S)
     Route: 048
  11. BI-PROFENID [Concomitant]
     Indication: DRUG USE FOR UNKNOWN INDICATION
     Dosage: DAILY DOSE:  UNKNOWN
     Route: 065
     Dates: start: 20090517, end: 20090519

REACTIONS (4)
  - CONFUSIONAL STATE [None]
  - FALL [None]
  - HYPONATRAEMIA [None]
  - PELVIC FRACTURE [None]
